FAERS Safety Report 15674209 (Version 2)
Quarter: 2019Q2

REPORT INFORMATION
  Report Type: Report from Study
  Country: None (occurrence: DE)
  Receive Date: 20181130
  Receipt Date: 20190430
  Transmission Date: 20190711
  Serious: Yes (Hospitalization)
  Sender: FDA-Public Use
  Company Number: DE-KADMON PHARMACEUTICALS, LLC-KAD-201811-01400

PATIENT
  Age: 53 Year
  Sex: Male
  Weight: 64 kg

DRUGS (12)
  1. RIBAVIRIN. [Suspect]
     Active Substance: RIBAVIRIN
     Indication: CHRONIC HEPATITIS C
     Dosage: 1200 MG
     Route: 048
     Dates: start: 20140213, end: 20140723
  2. PEGINTERFERON ALFA-2A. [Suspect]
     Active Substance: PEGINTERFERON ALFA-2A
     Indication: CHRONIC HEPATITIS C
     Dosage: 180 MCG
     Route: 058
     Dates: start: 20140213, end: 20140723
  3. TENOFOVIR [Concomitant]
     Active Substance: TENOFOVIR
     Indication: HIV INFECTION
     Dosage: 200 MG
  4. SYMBICORT [Concomitant]
     Active Substance: BUDESONIDE\FORMOTEROL FUMARATE DIHYDRATE
     Dosage: 160/4.5
     Dates: start: 20181105
  5. ATAZANAVIR. [Concomitant]
     Active Substance: ATAZANAVIR
     Indication: HIV INFECTION
     Dosage: 300 MG
  6. TENOFOVIR [Concomitant]
     Active Substance: TENOFOVIR
     Dosage: 300 MG
  7. CITALOPRAM [Concomitant]
     Active Substance: CITALOPRAM HYDROBROMIDE
     Dosage: 20 MG
     Dates: start: 20140207, end: 20140709
  8. RITONAVIR. [Concomitant]
     Active Substance: RITONAVIR
     Indication: HIV INFECTION
     Dosage: 100 MG
  9. EMTRICITABINE [Concomitant]
     Active Substance: EMTRICITABINE
     Indication: HIV INFECTION
     Dosage: 200 MG
  10. EMTRICITABINE [Concomitant]
     Active Substance: EMTRICITABINE
     Dosage: 300 MG
  11. IBUFLAM [IBUPROFEN] [Concomitant]
     Active Substance: IBUPROFEN
     Dosage: 600 MG
     Dates: start: 20181109
  12. DEKRISTOL [Concomitant]
     Active Substance: CHOLECALCIFEROL
     Dates: start: 20140207

REACTIONS (2)
  - Nasal septum deviation [Recovering/Resolving]
  - Asthma [Recovered/Resolved]

NARRATIVE: CASE EVENT DATE: 20180817
